FAERS Safety Report 25749280 (Version 4)
Quarter: 2025Q4

REPORT INFORMATION
  Report Type: Report from Study
  Country: EU (occurrence: EU)
  Receive Date: 20250902
  Receipt Date: 20251114
  Transmission Date: 20260117
  Serious: Yes (Hospitalization, Other)
  Sender: ABBVIE
  Company Number: EU-ABBVIE-6439275

PATIENT
  Age: 81 Year
  Sex: Male

DRUGS (2)
  1. CARBIDOPA\LEVODOPA [Suspect]
     Active Substance: CARBIDOPA\LEVODOPA
     Indication: Parkinson^s disease
     Route: 050
     Dates: start: 20201120
  2. CARBIDOPA\LEVODOPA [Suspect]
     Active Substance: CARBIDOPA\LEVODOPA

REACTIONS (13)
  - General physical health deterioration [Unknown]
  - Subdural haematoma [Recovering/Resolving]
  - Depressed level of consciousness [Unknown]
  - Craniocerebral injury [Recovering/Resolving]
  - Decreased appetite [Not Recovered/Not Resolved]
  - Intestinal obstruction [Unknown]
  - Fall [Unknown]
  - Stoma site infection [Unknown]
  - Hypertension [Recovering/Resolving]
  - Musculoskeletal stiffness [Unknown]
  - Anal incontinence [Unknown]
  - Food refusal [Unknown]
  - Dysphagia [Unknown]

NARRATIVE: CASE EVENT DATE: 20250823
